FAERS Safety Report 8597752-6 (Version None)
Quarter: 2012Q3

REPORT INFORMATION
  Report Type: 
  Country: None (occurrence: None)
  Receive Date: 20120816
  Receipt Date: 20120813
  Transmission Date: 20120928
  Serious: Yes (Other)
  Sender: FDA-Public Use
  Company Number: PHHY2012AU028859

PATIENT
  Sex: Female

DRUGS (1)
  1. ZOLEDRONOC ACID [Suspect]
     Indication: OSTEOPOROSIS
     Dosage: 5 MG, UNK
     Route: 042
     Dates: start: 20110121

REACTIONS (5)
  - SINUSITIS [None]
  - SWELLING FACE [None]
  - TRIGEMINAL NEURALGIA [None]
  - FACIAL PAIN [None]
  - PAIN IN JAW [None]
